FAERS Safety Report 24018785 (Version 1)
Quarter: 2024Q2

REPORT INFORMATION
  Report Type: Spontaneous
  Country: US (occurrence: US)
  Receive Date: 20240627
  Receipt Date: 20240627
  Transmission Date: 20240716
  Serious: Yes (Other)
  Sender: FDA-Public Use
  Company Number: US-BAXTER-2024BAX020340

PATIENT

DRUGS (3)
  1. SODIUM CHLORIDE [Suspect]
     Active Substance: SODIUM CHLORIDE
     Indication: Catheter management
     Route: 065
  2. WATER FOR INJECTION [Suspect]
     Active Substance: WATER
     Indication: Medication dilution
     Dosage: 100 ML USED TO DILUTE 100 MG OF ALTEPLASE
     Route: 042
  3. ALTEPLASE [Suspect]
     Active Substance: ALTEPLASE
     Dosage: 100 MG DILUTED IN 100 ML STERILE WATER
     Route: 042

REACTIONS (4)
  - Pulmonary embolism [Unknown]
  - Condition aggravated [Unknown]
  - Device infusion issue [Unknown]
  - Product administration error [Unknown]

NARRATIVE: CASE EVENT DATE: 20240408
